FAERS Safety Report 21578510 (Version 1)
Quarter: 2022Q4

REPORT INFORMATION
  Report Type: Spontaneous
  Country: US (occurrence: US)
  Receive Date: 20221110
  Receipt Date: 20221110
  Transmission Date: 20230112
  Serious: Yes (Other)
  Sender: FDA-Public Use
  Company Number: US-BRISTOL-MYERS SQUIBB COMPANY-2022-135255

PATIENT
  Age: 83 Year
  Sex: Female
  Weight: 65.77 kg

DRUGS (1)
  1. ELIQUIS [Suspect]
     Active Substance: APIXABAN
     Indication: Cerebrovascular accident prophylaxis
     Dosage: DOSE : 2.5MG;     FREQ : 2.5MG TWICE DAILY
     Route: 048
     Dates: start: 2021, end: 2022

REACTIONS (2)
  - Renal failure [Unknown]
  - Weight decreased [Unknown]
